FAERS Safety Report 8523623-7 (Version None)
Quarter: 2012Q3

REPORT INFORMATION
  Report Type: 
  Country: None (occurrence: None)
  Receive Date: 20120720
  Receipt Date: 20120717
  Transmission Date: 20120928
  Serious: Yes (Hospitalization)
  Sender: FDA-Public Use
  Company Number: JP-AMGEN-JPNCT2012044077

PATIENT
  Age: 45 Year
  Sex: Female
  Weight: 66.5 kg

DRUGS (5)
  1. DENOSUMAB [Suspect]
     Indication: BREAST CANCER
     Dosage: 120 MG, UNK
     Route: 058
     Dates: start: 20110106
  2. FUROSEMIDE [Concomitant]
     Dosage: 40 MG, UNK
     Route: 048
     Dates: start: 20110630
  3. VITAMIN D [Concomitant]
     Dosage: UNK IU, UNK
     Route: 048
     Dates: start: 20110106
  4. TAMOXIFEN CITRATE [Concomitant]
     Dosage: UNK
     Dates: start: 20110818
  5. CALCIUM [Concomitant]
     Dosage: 610 MG, UNK
     Route: 048
     Dates: start: 20110106

REACTIONS (1)
  - CELLULITIS [None]
